FAERS Safety Report 24104819 (Version 1)
Quarter: 2024Q3

REPORT INFORMATION
  Report Type: Spontaneous
  Country: FR (occurrence: FR)
  Receive Date: 20240717
  Receipt Date: 20240717
  Transmission Date: 20241017
  Serious: Yes (Other)
  Sender: CHEPLAPHARM
  Company Number: None

PATIENT
  Age: 28 Year
  Sex: Male

DRUGS (5)
  1. CLONAZEPAM [Suspect]
     Active Substance: CLONAZEPAM
     Dosage: 5 NG/ML
  2. CANNABIS SATIVA SUBSP. INDICA TOP [Suspect]
     Active Substance: CANNABIS SATIVA SUBSP. INDICA TOP
  3. PREGABALIN [Suspect]
     Active Substance: PREGABALIN
     Dosage: 2.3 ?G/ML
  4. COCAINE [Suspect]
     Active Substance: COCAINE
     Dosage: 4/5G ?86 NG/ML
     Route: 048
  5. ALCOHOL [Suspect]
     Active Substance: ALCOHOL

REACTIONS (4)
  - Drug use disorder [Unknown]
  - Burning sensation [Recovered/Resolved]
  - Abdominal pain [Recovered/Resolved]
  - Vomiting [Recovered/Resolved]

NARRATIVE: CASE EVENT DATE: 20240307
